FAERS Safety Report 21916917 (Version 1)
Quarter: 2023Q1

REPORT INFORMATION
  Report Type: Spontaneous
  Country: US (occurrence: None)
  Receive Date: 20230126
  Receipt Date: 20230126
  Transmission Date: 20230418
  Serious: Yes (Hospitalization)
  Sender: FDA-Public Use
  Company Number: None

PATIENT
  Age: 69 Year
  Sex: Female
  Weight: 54.9 kg

DRUGS (2)
  1. TYMLOS [Suspect]
     Active Substance: ABALOPARATIDE
  2. TYMLOS [Concomitant]
     Active Substance: ABALOPARATIDE

REACTIONS (1)
  - Stress cardiomyopathy [None]

NARRATIVE: CASE EVENT DATE: 20160101
